FAERS Safety Report 8647096 (Version 41)
Quarter: 2016Q1

REPORT INFORMATION
  Report Type: Report from Study
  Country: CA (occurrence: CA)
  Receive Date: 20120703
  Receipt Date: 20160112
  Transmission Date: 20160526
  Serious: Yes (Hospitalization, Other)
  Sender: FDA-Public Use
  Company Number: PHHY2012CA055825

PATIENT
  Age: 74 Year
  Sex: Female

DRUGS (5)
  1. SANDOSTATIN LAR DEPOT [Suspect]
     Active Substance: OCTREOTIDE ACETATE
     Dosage: 30 MG, UNK
     Route: 030
     Dates: end: 20141119
  2. SANDOSTATIN LAR DEPOT [Suspect]
     Active Substance: OCTREOTIDE ACETATE
     Indication: CARCINOID TUMOUR
     Dosage: 30 MG, QMO (FOUR WEEKS)
     Route: 030
     Dates: start: 20090914
  3. BISOPROLOL [Concomitant]
     Active Substance: BISOPROLOL
     Indication: PRODUCT USED FOR UNKNOWN INDICATION
     Route: 065
  4. SANDOSTATIN LAR DEPOT [Suspect]
     Active Substance: OCTREOTIDE ACETATE
     Dosage: 30 MG (EVERY 3 WEEKS)
     Route: 030
     Dates: start: 20150630
  5. SANDOSTATIN [Suspect]
     Active Substance: OCTREOTIDE ACETATE
     Indication: CARCINOID SYNDROME
     Dosage: UNK OT, TID FOR 5 DAYS
     Route: 058

REACTIONS (42)
  - Cardiac disorder [Unknown]
  - Arrhythmia [Unknown]
  - Urine odour abnormal [Unknown]
  - Platelet count decreased [Recovering/Resolving]
  - Pain [Unknown]
  - Haemoglobin increased [Unknown]
  - Blood pressure increased [Unknown]
  - Blood pressure decreased [Unknown]
  - Anaemia [Recovered/Resolved]
  - Constipation [Unknown]
  - Needle issue [Unknown]
  - Renal pain [Unknown]
  - Urinary tract infection [Recovered/Resolved]
  - Mass [Unknown]
  - Weight fluctuation [Unknown]
  - Weight decreased [Unknown]
  - Flank pain [Recovered/Resolved]
  - Ocular hyperaemia [Unknown]
  - Chromaturia [Unknown]
  - Epistaxis [Unknown]
  - Bicytopenia [Unknown]
  - Headache [Unknown]
  - Vomiting [Unknown]
  - Herpes simplex [Unknown]
  - Blood count abnormal [Unknown]
  - Hot flush [Unknown]
  - Diarrhoea [Not Recovered/Not Resolved]
  - Haematoma [Recovered/Resolved]
  - Anger [Unknown]
  - Feeling abnormal [Unknown]
  - Malaise [Unknown]
  - Nausea [Not Recovered/Not Resolved]
  - Heart rate decreased [Unknown]
  - Dyspnoea [Unknown]
  - Skin mass [Recovered/Resolved]
  - Off label use [Unknown]
  - Chronic kidney disease [Unknown]
  - Flushing [Unknown]
  - Heart valve incompetence [Unknown]
  - Fatigue [Unknown]
  - Asthenia [Unknown]
  - Inappropriate schedule of drug administration [Unknown]

NARRATIVE: CASE EVENT DATE: 2012
